FAERS Safety Report 18580160 (Version 2)
Quarter: 2023Q4

REPORT INFORMATION
  Report Type: Report from Study
  Country: BR (occurrence: BR)
  Receive Date: 20201204
  Receipt Date: 20231219
  Transmission Date: 20240109
  Serious: Yes (Hospitalization, Disabling, Other)
  Sender: FDA-Public Use
  Company Number: BR-ALEXION-14515

PATIENT
  Age: 15 Year
  Sex: Female
  Weight: 21.4 kg

DRUGS (7)
  1. STRENSIQ [Suspect]
     Active Substance: ASFOTASE ALFA
     Indication: Hypophosphatasia
     Dosage: 2 MG/KG, UNK
     Route: 058
     Dates: start: 20160609, end: 201803
  2. STRENSIQ [Suspect]
     Active Substance: ASFOTASE ALFA
     Dosage: UNK
     Route: 058
     Dates: start: 20161026, end: 201804
  3. STRENSIQ [Suspect]
     Active Substance: ASFOTASE ALFA
     Dosage: 0.7 ML, TIW
     Route: 058
     Dates: start: 201710, end: 201802
  4. STRENSIQ [Suspect]
     Active Substance: ASFOTASE ALFA
     Dosage: UNK
     Route: 058
     Dates: end: 2019
  5. OSCAL D                            /07451701/ [Concomitant]
     Indication: Hypophosphatasia
     Route: 065
  6. CALCITRIOL [Concomitant]
     Active Substance: CALCITRIOL
     Indication: Hypophosphatasia
     Route: 065
  7. CHOLECALCIFEROL [Concomitant]
     Active Substance: CHOLECALCIFEROL
     Indication: Hypophosphatasia
     Route: 065

REACTIONS (17)
  - Cerebral calcification [Unknown]
  - Pneumonia [Unknown]
  - Seizure [Unknown]
  - Bacteraemia [Unknown]
  - Asthenia [Unknown]
  - Neurological symptom [Unknown]
  - Influenza [Unknown]
  - Peripheral swelling [Not Recovered/Not Resolved]
  - Musculoskeletal stiffness [Not Recovered/Not Resolved]
  - Blood potassium abnormal [Unknown]
  - Blood test abnormal [Unknown]
  - Blood calcium decreased [Unknown]
  - Drug hypersensitivity [Unknown]
  - Injection site swelling [Unknown]
  - Injection site erythema [Unknown]
  - Skin reaction [Unknown]
  - Injection site pain [Unknown]

NARRATIVE: CASE EVENT DATE: 20180401
